FAERS Safety Report 4462634-8 (Version None)
Quarter: 2004Q3

REPORT INFORMATION
  Report Type: 
  Country: None (occurrence: None)
  Receive Date: 20040929
  Receipt Date: 20040831
  Transmission Date: 20050211
  Serious: Yes (Other)
  Sender: FDA-Public Use
  Company Number: 24974

PATIENT
  Age: 21 Year
  Sex: Female

DRUGS (2)
  1. METROGEL-VAGINAL [Suspect]
     Indication: VAGINITIS BACTERIAL
     Dosage: (37.5 MG, 1 IN 1 DAY(S), VAGINAL
     Route: 067
     Dates: start: 20040822, end: 20040826
  2. PRENATAL VITAMIN [Concomitant]

REACTIONS (6)
  - DRUG EXPOSURE DURING PREGNANCY [None]
  - MUSCLE CRAMP [None]
  - NAUSEA [None]
  - PELVIC PAIN [None]
  - VAGINAL HAEMORRHAGE [None]
  - VOMITING [None]
